FAERS Safety Report 5691730-2 (Version None)
Quarter: 2008Q2

REPORT INFORMATION
  Report Type: 
  Country: None (occurrence: None)
  Receive Date: 20080402
  Receipt Date: 20080326
  Transmission Date: 20081010
  Serious: Yes (Hospitalization, Other)
  Sender: FDA-Public Use
  Company Number: CO-JNJFOC-20080306334

PATIENT
  Age: 54 Year
  Sex: Female
  Weight: 38 kg

DRUGS (5)
  1. REMICADE [Suspect]
     Route: 042
  2. REMICADE [Suspect]
     Indication: ANKYLOSING SPONDYLITIS
     Route: 042
  3. METHOTREXATE [Concomitant]
     Indication: ANKYLOSING SPONDYLITIS
  4. CALCIUM [Concomitant]
  5. FOLIC ACID [Concomitant]

REACTIONS (1)
  - PULMONARY TUBERCULOSIS [None]
